FAERS Safety Report 17860509 (Version 1)
Quarter: 2020Q2

REPORT INFORMATION
  Report Type: Spontaneous
  Country: US (occurrence: US)
  Receive Date: 20200604
  Receipt Date: 20200604
  Transmission Date: 20200714
  Serious: No
  Sender: FDA-Public Use
  Company Number: US-009507513-2005USA010002

PATIENT
  Age: 62 Year
  Sex: Male

DRUGS (5)
  1. ALLEGRA [Concomitant]
     Active Substance: FEXOFENADINE HYDROCHLORIDE
  2. ASMANEX [Suspect]
     Active Substance: MOMETASONE FUROATE
     Indication: ASTHMA
     Dosage: ONE INHALATION TWICE A DAY
     Route: 055
  3. ASMANEX [Suspect]
     Active Substance: MOMETASONE FUROATE
     Dosage: ONE INHALATION TWICE A DAY
     Route: 055
     Dates: start: 202005
  4. SINGULAIR [Suspect]
     Active Substance: MONTELUKAST SODIUM
     Route: 048
  5. FLUTICASONE. [Concomitant]
     Active Substance: FLUTICASONE

REACTIONS (8)
  - Wheezing [Recovered/Resolved]
  - Poor quality device used [Unknown]
  - Asthma [Recovered/Resolved]
  - Circumstance or information capable of leading to medication error [Unknown]
  - Intentional product misuse [Unknown]
  - Product quality issue [Unknown]
  - Product dose omission [Unknown]
  - Product dose omission [Unknown]

NARRATIVE: CASE EVENT DATE: 202005
